FAERS Safety Report 8875297 (Version 1)
Quarter: 2012Q4

REPORT INFORMATION
  Report Type: 
  Country: US (occurrence: US)
  Receive Date: 20121026
  Receipt Date: 20121026
  Transmission Date: 20130627
  Serious: No
  Sender: FDA-Public Use
  Company Number: US-AMGEN-USASP2012044696

PATIENT
  Sex: Female
  Weight: 108.39 kg

DRUGS (9)
  1. ENBREL [Suspect]
     Indication: PRODUCT USED FOR UNKNOWN INDICATION
     Dosage: 25 mg, q2wk
     Route: 058
  2. IRON [Concomitant]
     Dosage: 18 mg, UNK
  3. PILOCARPINE [Concomitant]
     Dosage: 5 mg, UNK
  4. CELEBREX [Concomitant]
     Dosage: 50 mg, UNK
  5. ASPIRIN [Concomitant]
     Dosage: 81 mg, UNK
  6. LEVOXYL [Concomitant]
     Dosage: 100 mug, UNK
  7. OXYCONTIN [Concomitant]
     Dosage: 10 mg, UNK
  8. VITAMIN D /00107901/ [Concomitant]
     Dosage: 1000 unit, UNK
  9. FISH OIL [Concomitant]
     Dosage: UNK

REACTIONS (1)
  - Anaemia [Recovered/Resolved]
